FAERS Safety Report 9320499 (Version 1)
Quarter: 2013Q2

REPORT INFORMATION
  Report Type: Spontaneous
  Country: GB (occurrence: GB)
  Receive Date: 20130530
  Receipt Date: 20130530
  Transmission Date: 20140414
  Serious: Yes (Hospitalization, Other)
  Sender: FDA-Public Use
  Company Number: PHHY2013GB052184

PATIENT
  Age: 21 Year
  Sex: Male

DRUGS (6)
  1. HALDOL [Suspect]
     Indication: ABNORMAL BEHAVIOUR
     Dosage: 25 MG, ONCE/SINGLE
     Route: 030
     Dates: start: 20130331, end: 20130331
  2. HALDOL [Suspect]
     Indication: MENTAL DISORDER
     Dosage: 50 MG, UNK
     Route: 030
     Dates: start: 20130408, end: 20130408
  3. HALDOL [Suspect]
     Indication: MANIA
  4. HALOPERIDOL [Suspect]
     Dosage: 3 MG, Q8H
     Route: 048
  5. DEPAKOTE [Suspect]
     Indication: DRUG THERAPY
     Dosage: 500 MG, TID
     Route: 048
  6. PROCYCLIDINE [Concomitant]
     Dosage: 5 MG, Q6H
     Route: 048

REACTIONS (5)
  - Coma scale abnormal [Unknown]
  - Dystonia [Unknown]
  - Hypertonia [Unknown]
  - Gait disturbance [Unknown]
  - Sedation [Unknown]
